FAERS Safety Report 9917787 (Version 2)
Quarter: 2014Q1

REPORT INFORMATION
  Report Type: Spontaneous
  Country: US (occurrence: US)
  Receive Date: 20140221
  Receipt Date: 20140327
  Transmission Date: 20141002
  Serious: No
  Sender: FDA-Public Use
  Company Number: US-PFIZER INC-2014049424

PATIENT
  Sex: Female

DRUGS (2)
  1. CELEBREX [Suspect]
     Dosage: 200 MG, UNK
  2. PREMPRO [Concomitant]
     Dosage: 0.45-1.5MG

REACTIONS (3)
  - Drug effect delayed [Unknown]
  - Drug effect incomplete [Unknown]
  - Impaired healing [Unknown]
